FAERS Safety Report 5107592-8 (Version None)
Quarter: 2006Q3

REPORT INFORMATION
  Report Type: 
  Country: None (occurrence: None)
  Receive Date: 20060913
  Receipt Date: 20060913
  Transmission Date: 20061208
  Serious: Yes (Hospitalization)
  Sender: FDA-Public Use
  Company Number: None

PATIENT
  Sex: Male
  Weight: 74.3899 kg

DRUGS (9)
  1. DOXIL [Suspect]
     Indication: PROSTATE CANCER
     Dosage: 58.5 MG DAY 1 EVERY 28 DAY  IV DRIP
     Route: 041
     Dates: start: 20060621, end: 20060807
  2. TAXOTERE [Suspect]
     Indication: PROSTATE CANCER
     Dosage: 58.5 MG  DAY 1,8,15 EVERY 28 IV DRIP
     Route: 041
     Dates: start: 20060621, end: 20060807
  3. MS CONTIN [Concomitant]
  4. LORTAB [Concomitant]
  5. PHENERGAN [Concomitant]
  6. PEPCID [Concomitant]
  7. REGLAN [Concomitant]
  8. DIFLUCAN [Concomitant]
  9. KYTRIL [Concomitant]

REACTIONS (6)
  - BILE DUCT STONE [None]
  - BODY TEMPERATURE INCREASED [None]
  - COSTOVERTEBRAL ANGLE TENDERNESS [None]
  - DYSURIA [None]
  - HAEMATURIA [None]
  - RENAL MASS [None]
